FAERS Safety Report 25553067 (Version 1)
Quarter: 2025Q3

REPORT INFORMATION
  Report Type: Spontaneous
  Country: US (occurrence: US)
  Receive Date: 20250715
  Receipt Date: 20250715
  Transmission Date: 20251021
  Serious: No
  Sender: STALLERGENES
  Company Number: US-STALCOR-2025-AER-01867

PATIENT
  Age: 9 Year
  Sex: Male

DRUGS (2)
  1. ORALAIR [Suspect]
     Active Substance: ANTHOXANTHUM ODORATUM POLLEN\DACTYLIS GLOMERATA POLLEN\LOLIUM PERENNE POLLEN\PHLEUM PRATENSE POLLEN\
     Indication: Product used for unknown indication
     Dosage: ONE TABLET UNDER THE TONGUE EACH MORNING
     Route: 060
     Dates: start: 20250321
  2. VYVANSE [Concomitant]
     Active Substance: LISDEXAMFETAMINE DIMESYLATE
     Indication: Product used for unknown indication

REACTIONS (2)
  - Oedema mouth [Recovering/Resolving]
  - Product dose omission issue [Recovering/Resolving]
